FAERS Safety Report 16862056 (Version 1)
Quarter: 2019Q3

REPORT INFORMATION
  Report Type: Report from Study
  Country: ES (occurrence: ES)
  Receive Date: 20190927
  Receipt Date: 20190927
  Transmission Date: 20191005
  Serious: Yes (Life-Threatening, Hospitalization, Other)
  Sender: FDA-Public Use
  Company Number: ES-ACCORD-155879

PATIENT
  Age: 50 Year
  Sex: Female

DRUGS (5)
  1. CLONAZEPAM. [Suspect]
     Active Substance: CLONAZEPAM
     Indication: ADJUSTMENT DISORDER WITH ANXIETY
     Route: 048
     Dates: start: 20190516, end: 20190516
  2. ENALAPRIL/HYDROCHLOROTHIAZIDE [Concomitant]
     Indication: HYPERTENSION
     Route: 048
     Dates: start: 201509, end: 20190516
  3. QUETIAPINE. [Interacting]
     Active Substance: QUETIAPINE
     Indication: ADJUSTMENT DISORDER WITH ANXIETY
     Route: 048
     Dates: start: 20190516, end: 20190516
  4. NAPROXEN. [Concomitant]
     Active Substance: NAPROXEN
     Route: 048
     Dates: start: 20190516, end: 20190516
  5. ANAFRANIL [Interacting]
     Active Substance: CLOMIPRAMINE HYDROCHLORIDE
     Indication: ADJUSTMENT DISORDER WITH ANXIETY
     Dosage: STRENGTH: 25 MG
     Route: 048
     Dates: start: 20190516, end: 20190516

REACTIONS (3)
  - Intentional overdose [Unknown]
  - Depressed level of consciousness [Recovered/Resolved]
  - Drug interaction [Unknown]

NARRATIVE: CASE EVENT DATE: 20190516
